FAERS Safety Report 19014815 (Version 3)
Quarter: 2021Q3

REPORT INFORMATION
  Report Type: Spontaneous
  Country: US (occurrence: US)
  Receive Date: 20210317
  Receipt Date: 20210701
  Transmission Date: 20211014
  Serious: Yes (Hospitalization, Other)
  Sender: FDA-Public Use
  Company Number: US-ASTRAZENECA-2021A132692

PATIENT
  Age: 20160 Day
  Sex: Female
  Weight: 114.8 kg

DRUGS (56)
  1. FARXIGA [Suspect]
     Active Substance: DAPAGLIFLOZIN PROPANEDIOL
     Indication: TYPE 2 DIABETES MELLITUS
     Route: 048
     Dates: start: 20181007
  2. CRESTOR [Concomitant]
     Active Substance: ROSUVASTATIN CALCIUM
  3. FLAGYL [Concomitant]
     Active Substance: METRONIDAZOLE\METRONIDAZOLE HYDROCHLORIDE
  4. LIDOCAINE?EPINEPHRINE [Concomitant]
     Active Substance: EPINEPHRINE\LIDOCAINE
  5. DULCOLAX NOS [Concomitant]
     Active Substance: BISACODYL OR DOCUSATE SODIUM
  6. VITAMIN B12 [Concomitant]
     Active Substance: CYANOCOBALAMIN
  7. NORMODYNE [Concomitant]
     Active Substance: LABETALOL HYDROCHLORIDE
  8. ENOXAPARIN SODIUM. [Concomitant]
     Active Substance: ENOXAPARIN SODIUM
  9. MAGNESIUM SULFATE. [Concomitant]
     Active Substance: MAGNESIUM SULFATE
  10. LIPITOR [Concomitant]
     Active Substance: ATORVASTATIN CALCIUM
     Dosage: 40 MG TABLET
  11. FARXIGA [Suspect]
     Active Substance: DAPAGLIFLOZIN PROPANEDIOL
     Indication: WEIGHT DECREASED
     Route: 048
     Dates: start: 20180329
  12. ZESTORETIC [Concomitant]
     Active Substance: HYDROCHLOROTHIAZIDE\LISINOPRIL
  13. DILAUDID [Concomitant]
     Active Substance: HYDROMORPHONE HYDROCHLORIDE
  14. LIDOCAINE. [Concomitant]
     Active Substance: LIDOCAINE
  15. FARXIGA [Suspect]
     Active Substance: DAPAGLIFLOZIN PROPANEDIOL
     Indication: BLOOD PRESSURE DECREASED
     Route: 048
     Dates: start: 20180329
  16. FARXIGA [Suspect]
     Active Substance: DAPAGLIFLOZIN PROPANEDIOL
     Indication: BLOOD PRESSURE DECREASED
     Route: 048
     Dates: start: 20181007
  17. CLEOCIN [Concomitant]
     Active Substance: CLINDAMYCIN PHOSPHATE
  18. MONISTAT [Concomitant]
     Active Substance: MICONAZOLE NITRATE
  19. LISINOPRIL. [Concomitant]
     Active Substance: LISINOPRIL
  20. GLUTOSE [Concomitant]
     Active Substance: DEXTROSE
  21. FOLIC ACID. [Concomitant]
     Active Substance: FOLIC ACID
  22. FISH OIL [Concomitant]
     Active Substance: FISH OIL
  23. NORVASC [Concomitant]
     Active Substance: AMLODIPINE BESYLATE
  24. PROZAC [Concomitant]
     Active Substance: FLUOXETINE HYDROCHLORIDE
  25. DEMEROL [Concomitant]
     Active Substance: MEPERIDINE HYDROCHLORIDE
  26. LOPRESSOR [Concomitant]
     Active Substance: METOPROLOL TARTRATE
  27. FLUCONAZOLE. [Concomitant]
     Active Substance: FLUCONAZOLE
     Dosage: 150 MG TABLET
  28. FARXIGA [Suspect]
     Active Substance: DAPAGLIFLOZIN PROPANEDIOL
     Indication: TYPE 2 DIABETES MELLITUS
     Route: 048
     Dates: start: 20180329
  29. VANCOMYCIN [Concomitant]
     Active Substance: VANCOMYCIN
  30. NORCO [Concomitant]
     Active Substance: ACETAMINOPHEN\HYDROCODONE BITARTRATE
  31. REGLAN [Concomitant]
     Active Substance: METOCLOPRAMIDE HYDROCHLORIDE
  32. ATIVAN [Concomitant]
     Active Substance: LORAZEPAM
  33. SODIUM CHLORIDE. [Concomitant]
     Active Substance: SODIUM CHLORIDE
  34. ZOFRAN [Concomitant]
     Active Substance: ONDANSETRON HYDROCHLORIDE
  35. MOTRIN [Concomitant]
     Active Substance: IBUPROFEN
  36. TRANEXAMIC ACID. [Concomitant]
     Active Substance: TRANEXAMIC ACID
  37. DECADRON [Concomitant]
     Active Substance: DEXAMETHASONE
  38. PERCOCET [Concomitant]
     Active Substance: ACETAMINOPHEN\OXYCODONE HYDROCHLORIDE
  39. FARXIGA [Suspect]
     Active Substance: DAPAGLIFLOZIN PROPANEDIOL
     Indication: WEIGHT DECREASED
     Route: 048
     Dates: start: 20181007
  40. GLUCOPHAGE [Concomitant]
     Active Substance: METFORMIN HYDROCHLORIDE
  41. SUBLIMAZE [Concomitant]
     Active Substance: FENTANYL CITRATE
  42. MORPHINE [Concomitant]
     Active Substance: MORPHINE
  43. ROXICODONE [Concomitant]
     Active Substance: OXYCODONE HYDROCHLORIDE
  44. ZITHROMAX [Concomitant]
     Active Substance: AZITHROMYCIN DIHYDRATE
  45. BACTRIM [Concomitant]
     Active Substance: SULFAMETHOXAZOLE\TRIMETHOPRIM
  46. DIPRIVAN [Concomitant]
     Active Substance: PROPOFOL
  47. APRESOLINE HYDROCHLORIDE [Concomitant]
     Active Substance: HYDRALAZINE HYDROCHLORIDE
  48. SENNA [Concomitant]
     Active Substance: SENNA LEAF\SENNOSIDES\SENNOSIDES A AND B
  49. POTASSIUM CHLORIDE. [Concomitant]
     Active Substance: POTASSIUM CHLORIDE
  50. AMARYL [Concomitant]
     Active Substance: GLIMEPIRIDE
  51. MAXIPIME [Concomitant]
     Active Substance: CEFEPIME HYDROCHLORIDE
  52. TYLENOL [Concomitant]
     Active Substance: ACETAMINOPHEN
  53. TRULICITY [Concomitant]
     Active Substance: DULAGLUTIDE
  54. FLOXIN [Concomitant]
     Active Substance: OFLOXACIN
  55. COMPAZINE [Concomitant]
     Active Substance: PROCHLORPERAZINE MALEATE
  56. ONDANSETRON [Concomitant]
     Active Substance: ONDANSETRON

REACTIONS (15)
  - Vulval abscess [Unknown]
  - Vaginal cellulitis [Unknown]
  - Abscess limb [Unknown]
  - Sepsis [Unknown]
  - Vaginal abscess [Unknown]
  - Pelvic abscess [Unknown]
  - Fournier^s gangrene [Unknown]
  - Vulval cellulitis [Unknown]
  - Necrotising fasciitis [Unknown]
  - Septic shock [Unknown]
  - Genital abscess [Unknown]
  - Urinary tract infection [Unknown]
  - Perineal cellulitis [Unknown]
  - Cellulitis [Unknown]
  - Perineal abscess [Unknown]

NARRATIVE: CASE EVENT DATE: 20181007
